FAERS Safety Report 18277592 (Version 1)
Quarter: 2020Q3

REPORT INFORMATION
  Report Type: Spontaneous
  Country: UG (occurrence: UG)
  Receive Date: 20200917
  Receipt Date: 20200917
  Transmission Date: 20201103
  Serious: Yes (Hospitalization)
  Sender: FDA-Public Use
  Company Number: UG-PFIZER INC-2020356764

PATIENT
  Age: 77 Year
  Sex: Female

DRUGS (1)
  1. ZITHROMAX [Suspect]
     Active Substance: AZITHROMYCIN DIHYDRATE
     Indication: TRACHOMA
     Dosage: UNK
     Route: 048
     Dates: start: 20200908

REACTIONS (3)
  - Allergic stomatitis [Recovering/Resolving]
  - Glossitis [Recovering/Resolving]
  - Hypersensitivity [Recovering/Resolving]

NARRATIVE: CASE EVENT DATE: 20200908
